FAERS Safety Report 14974454 (Version 1)
Quarter: 2018Q2

REPORT INFORMATION
  Report Type: Spontaneous
  Country: US (occurrence: US)
  Receive Date: 20180514
  Receipt Date: 20180514
  Transmission Date: 20180711
  Serious: Yes (Other)
  Sender: FDA-Public Use
  Company Number: None

PATIENT
  Age: 61 Year
  Sex: Female
  Weight: 76.5 kg

DRUGS (15)
  1. TAFINLAR [Suspect]
     Active Substance: DABRAFENIB MESYLATE
     Indication: MALIGNANT MELANOMA
     Route: 048
     Dates: start: 20171204
  2. MAGNESIUM [Concomitant]
     Active Substance: MAGNESIUM
  3. METFORMIN [Concomitant]
     Active Substance: METFORMIN HYDROCHLORIDE
  4. IBUPROFEN. [Concomitant]
     Active Substance: IBUPROFEN
  5. MOMETASONE [Concomitant]
     Active Substance: MOMETASONE
  6. RAMIPRIL. [Concomitant]
     Active Substance: RAMIPRIL
  7. TRULICITY [Concomitant]
     Active Substance: DULAGLUTIDE
  8. APAP [Concomitant]
     Active Substance: ACETAMINOPHEN
  9. JANUVIA [Concomitant]
     Active Substance: SITAGLIPTIN PHOSPHATE
  10. MULTIVITAMINS [Concomitant]
     Active Substance: VITAMINS
  11. MEKINIST [Suspect]
     Active Substance: TRAMETINIB DIMETHYL SULFOXIDE
     Indication: MALIGNANT MELANOMA
     Route: 048
     Dates: start: 20171204
  12. CALCIUM + D [Concomitant]
     Active Substance: CALCIUM\VITAMIN D
  13. GLIPIZIDE. [Concomitant]
     Active Substance: GLIPIZIDE
  14. METOPROLOL. [Concomitant]
     Active Substance: METOPROLOL
  15. SIMVASTATIN. [Concomitant]
     Active Substance: SIMVASTATIN

REACTIONS (2)
  - Liver function test increased [None]
  - Pyrexia [None]
